FAERS Safety Report 9981016 (Version 3)
Quarter: 2014Q3

REPORT INFORMATION
  Report Type: Spontaneous
  Country: JP (occurrence: JP)
  Receive Date: 20140307
  Receipt Date: 20140827
  Transmission Date: 20150326
  Serious: No
  Sender: FDA-Public Use
  Company Number: JP-ROCHE-1358750

PATIENT
  Age: 43 Year
  Sex: Male

DRUGS (3)
  1. AVASTIN [Suspect]
     Active Substance: BEVACIZUMAB
     Indication: RETINAL VEIN OCCLUSION
     Dosage: DOSAGE IS UNCERTAIN.
     Route: 031
     Dates: start: 201203, end: 201203
  2. AVASTIN [Suspect]
     Active Substance: BEVACIZUMAB
     Indication: RETINAL VEIN OCCLUSION
     Dosage: DOSAGE IS UNCERTAIN.
     Route: 031
     Dates: start: 2011, end: 2011
  3. AVASTIN [Suspect]
     Active Substance: BEVACIZUMAB
     Indication: RETINAL VEIN OCCLUSION
     Dosage: DOSAGE IS UNCERTAIN.
     Route: 031
     Dates: start: 20110702, end: 201111

REACTIONS (2)
  - Off label use [Unknown]
  - Macular fibrosis [Not Recovered/Not Resolved]

NARRATIVE: CASE EVENT DATE: 20110702
